FAERS Safety Report 12874810 (Version 3)
Quarter: 2016Q4

REPORT INFORMATION
  Report Type: Spontaneous
  Country: CA (occurrence: CA)
  Receive Date: 20161022
  Receipt Date: 20161214
  Transmission Date: 20170207
  Serious: Yes (Hospitalization, Other)
  Sender: FDA-Public Use
  Company Number: CA-ACTELION-A-NJ2016-143841

PATIENT
  Age: 64 Year
  Sex: Female

DRUGS (10)
  1. UPTRAVI [Suspect]
     Active Substance: SELEXIPAG
     Indication: PULMONARY ARTERIAL HYPERTENSION
     Dosage: 400 MCG, BID
     Route: 048
     Dates: start: 20160928
  2. LIPITOR [Concomitant]
     Active Substance: ATORVASTATIN CALCIUM
     Dosage: 20 MG, UNK
  3. VITAMIN D [Concomitant]
     Active Substance: CHOLECALCIFEROL
  4. CENTRUM [Concomitant]
     Active Substance: VITAMINS
  5. IRON FERROUS FUMARATE [Concomitant]
     Dosage: 300 MG, UNK
  6. LASIX [Concomitant]
     Active Substance: FUROSEMIDE
     Dosage: 20 MG, UNK
  7. PANTOLOC [Concomitant]
     Active Substance: PANTOPRAZOLE SODIUM
     Dosage: 40 MG, UNK
  8. VITAMIN C [Concomitant]
     Active Substance: ASCORBIC ACID
  9. UPTRAVI [Suspect]
     Active Substance: SELEXIPAG
     Dosage: 800 MCG, BID
     Route: 048
  10. ADCIRCA [Concomitant]
     Active Substance: TADALAFIL

REACTIONS (6)
  - Heart rate increased [Not Recovered/Not Resolved]
  - Hypoaesthesia [Recovered/Resolved]
  - Transfusion [Not Recovered/Not Resolved]
  - Nasopharyngitis [Not Recovered/Not Resolved]
  - Haemoglobin abnormal [Not Recovered/Not Resolved]
  - Transient ischaemic attack [Recovered/Resolved]

NARRATIVE: CASE EVENT DATE: 20161010
